FAERS Safety Report 24872797 (Version 2)
Quarter: 2025Q1

REPORT INFORMATION
  Report Type: Spontaneous
  Country: AU (occurrence: AU)
  Receive Date: 20250122
  Receipt Date: 20250325
  Transmission Date: 20250408
  Serious: Yes (Other)
  Sender: REGENERON
  Company Number: AU-BAYER-2025A008393

PATIENT
  Age: 81 Year
  Sex: Male

DRUGS (1)
  1. EYLEA [Suspect]
     Active Substance: AFLIBERCEPT
     Indication: Neovascular age-related macular degeneration

REACTIONS (3)
  - Retinal oedema [Unknown]
  - Vitreous floaters [Unknown]
  - Inappropriate schedule of product administration [Unknown]
